FAERS Safety Report 12876307 (Version 1)
Quarter: 2016Q4

REPORT INFORMATION
  Report Type: Spontaneous
  Country: FR (occurrence: FR)
  Receive Date: 20161024
  Receipt Date: 20161024
  Transmission Date: 20170207
  Serious: Yes (Hospitalization)
  Sender: FDA-Public Use
  Company Number: FR-TEVA-702788ROM

PATIENT
  Age: 43 Year
  Sex: Female
  Weight: 51 kg

DRUGS (21)
  1. DOXORUBICINE TEVA [Suspect]
     Active Substance: DOXORUBICIN
     Dosage: ABVD PROTOCOL (DOXORUBICIN TEVA, VELBE, BLEOMYCINE BELLON, DACARBAZINE MEDAC), THIRD COURSE
     Route: 041
     Dates: start: 20160526
  2. DOXORUBICINE TEVA [Suspect]
     Active Substance: DOXORUBICIN
     Dosage: ABVD PROTOCOL (DOXORUBICIN TEVA, VELBE, BLEOMYCINE BELLON, DACARBAZINE MEDAC), FOURTH COURSE
     Route: 041
     Dates: start: 20160623, end: 20160709
  3. BLEOMYCINE BELLON 15 MG [Suspect]
     Active Substance: BLEOMYCIN SULFATE
     Dosage: ABVD PROTOCOL (DOXORUBICIN TEVA, VELBE, BLEOMYCINE BELLON, DACARBAZINE MEDAC), SECOND COURSE
     Route: 042
     Dates: start: 20160428
  4. EMEND [Suspect]
     Active Substance: APREPITANT
     Dates: start: 20160331
  5. DOXORUBICINE TEVA [Suspect]
     Active Substance: DOXORUBICIN
     Indication: HODGKIN^S DISEASE NODULAR SCLEROSIS STAGE II
     Dosage: ABVD PROTOCOL (DOXORUBICIN TEVA, VELBE, BLEOMYCINE BELLON, DACARBAZINE MEDAC), FIRST COURSE
     Route: 041
     Dates: start: 20160331
  6. EMEND [Suspect]
     Active Substance: APREPITANT
     Dates: start: 20160526
  7. TRINORDIOL [Concomitant]
     Active Substance: ETHINYL ESTRADIOL\LEVONORGESTREL
  8. VELBE [Suspect]
     Active Substance: VINBLASTINE SULFATE
     Dosage: ABVD PROTOCOL (DOXORUBICIN TEVA, VELBE, BLEOMYCINE BELLON, DACARBAZINE MEDAC), FOURTH COURSE
     Route: 041
     Dates: start: 20160623, end: 20160709
  9. BLEOMYCINE BELLON 15 MG [Suspect]
     Active Substance: BLEOMYCIN SULFATE
     Dosage: ABVD PROTOCOL (DOXORUBICIN TEVA, VELBE, BLEOMYCINE BELLON, DACARBAZINE MEDAC), FOURTH COURSE
     Route: 042
     Dates: start: 20160623, end: 20160709
  10. DOXORUBICINE TEVA [Suspect]
     Active Substance: DOXORUBICIN
     Dosage: ABVD PROTOCOL (DOXORUBICIN TEVA, VELBE, BLEOMYCINE BELLON, DACARBAZINE MEDAC), SECOND COURSE
     Route: 041
     Dates: start: 20160428
  11. VELBE [Suspect]
     Active Substance: VINBLASTINE SULFATE
     Dosage: ABVD PROTOCOL (DOXORUBICIN TEVA, VELBE, BLEOMYCINE BELLON, DACARBAZINE MEDAC), SECOND COURSE
     Route: 041
     Dates: start: 20160428
  12. BLEOMYCINE BELLON 15 MG [Suspect]
     Active Substance: BLEOMYCIN SULFATE
     Dosage: ABVD PROTOCOL (DOXORUBICIN TEVA, VELBE, BLEOMYCINE BELLON, DACARBAZINE MEDAC), THIRD COURSE
     Route: 042
     Dates: start: 20160526
  13. DACARBAZINE MEDAC [Suspect]
     Active Substance: DACARBAZINE
     Dosage: ABVD PROTOCOL (DOXORUBICIN TEVA, VELBE, BLEOMYCINE BELLON, DACARBAZINE MEDAC), THIRD COURSE
     Route: 041
     Dates: start: 20160526
  14. EMEND [Suspect]
     Active Substance: APREPITANT
     Dates: start: 20160623, end: 20160709
  15. VELBE [Suspect]
     Active Substance: VINBLASTINE SULFATE
     Dosage: ABVD PROTOCOL (DOXORUBICIN TEVA, VELBE, BLEOMYCINE BELLON, DACARBAZINE MEDAC), THIRD COURSE
     Route: 041
     Dates: start: 20160526
  16. VELBE [Suspect]
     Active Substance: VINBLASTINE SULFATE
     Indication: HODGKIN^S DISEASE NODULAR SCLEROSIS STAGE II
     Dosage: ABVD PROTOCOL (DOXORUBICIN TEVA, VELBE, BLEOMYCINE BELLON, DACARBAZINE MEDAC), FIRST COURSE
     Route: 041
     Dates: start: 20160331
  17. DACARBAZINE MEDAC [Suspect]
     Active Substance: DACARBAZINE
     Dosage: ABVD PROTOCOL (DOXORUBICIN TEVA, VELBE, BLEOMYCINE BELLON, DACARBAZINE MEDAC), FOURTH COURSE
     Route: 041
     Dates: start: 20160623, end: 20160709
  18. BLEOMYCINE BELLON 15 MG [Suspect]
     Active Substance: BLEOMYCIN SULFATE
     Indication: HODGKIN^S DISEASE NODULAR SCLEROSIS STAGE II
     Dosage: ABVD PROTOCOL (DOXORUBICIN TEVA, VELBE, BLEOMYCINE BELLON, DACARBAZINE MEDAC), FIRST COURSE
     Route: 042
     Dates: start: 20160331
  19. DACARBAZINE MEDAC [Suspect]
     Active Substance: DACARBAZINE
     Indication: HODGKIN^S DISEASE NODULAR SCLEROSIS STAGE II
     Dosage: ABVD PROTOCOL (DOXORUBICIN TEVA, VELBE, BLEOMYCINE BELLON, DACARBAZINE MEDAC), FIRST COURSE
     Route: 041
     Dates: start: 20160331
  20. DACARBAZINE MEDAC [Suspect]
     Active Substance: DACARBAZINE
     Dosage: ABVD PROTOCOL (DOXORUBICIN TEVA, VELBE, BLEOMYCINE BELLON, DACARBAZINE MEDAC), SECOND COURSE
     Route: 041
     Dates: start: 20160428
  21. EMEND [Suspect]
     Active Substance: APREPITANT
     Dates: start: 20160428

REACTIONS (8)
  - Paraesthesia [Recovered/Resolved]
  - Anaemia [Not Recovered/Not Resolved]
  - Chills [Recovered/Resolved]
  - Back pain [Recovered/Resolved]
  - Neutropenia [Recovered/Resolved]
  - Hyperthermia [Recovered/Resolved]
  - Thrombocytosis [Recovered/Resolved]
  - Arthralgia [Recovered/Resolved]

NARRATIVE: CASE EVENT DATE: 20160331
